FAERS Safety Report 9934830 (Version 1)
Quarter: 2014Q1

REPORT INFORMATION
  Report Type: Spontaneous
  Country: US (occurrence: US)
  Receive Date: 20140228
  Receipt Date: 20140228
  Transmission Date: 20141002
  Serious: Yes (Other)
  Sender: FDA-Public Use
  Company Number: PHEH2014US003889

PATIENT
  Sex: Female

DRUGS (10)
  1. FANAPT [Suspect]
     Dosage: 1 DF, QD
  2. FANAPT [Suspect]
     Dosage: 6 MG, BID
  3. QUINAPRIL [Concomitant]
     Dosage: UNK UKN, UNK
  4. ACCUPRIL [Concomitant]
     Dosage: UNK UKN, UNK
  5. CLONIDINE [Concomitant]
     Dosage: UNK UKN, UNK
  6. AMLODIPINE [Concomitant]
     Dosage: UNK UKN, UNK
  7. CALCIUM [Concomitant]
     Dosage: UNK UKN, UNK
  8. MAGNESIUM [Concomitant]
     Dosage: UNK UKN, UNK
  9. COQ10 [Concomitant]
     Dosage: UNK UKN, UNK
  10. VITAMIN D3 [Concomitant]
     Dosage: UNK UKN, UNK

REACTIONS (1)
  - Hypertension [Unknown]
